FAERS Safety Report 7906507-4 (Version None)
Quarter: 2011Q4

REPORT INFORMATION
  Report Type: 
  Country: None (occurrence: None)
  Receive Date: 20111110
  Receipt Date: 20111028
  Transmission Date: 20120403
  Serious: Yes (Other)
  Sender: FDA-Public Use
  Company Number: US-ELI_LILLY_AND_COMPANY-US201107002721

PATIENT
  Sex: Female
  Weight: 89.796 kg

DRUGS (7)
  1. VITAMIN D [Concomitant]
     Dosage: UNK
  2. NEXIUM [Concomitant]
  3. MIRAPEX [Concomitant]
  4. CRESTOR [Concomitant]
  5. FORTEO [Suspect]
     Dosage: 20 UG, QD
     Route: 058
  6. ACTOS [Concomitant]
  7. FORTEO [Suspect]
     Indication: OSTEOPOROSIS
     Dosage: 20 UG, QD
     Route: 058
     Dates: start: 20110524

REACTIONS (3)
  - BLOOD PARATHYROID HORMONE DECREASED [None]
  - PELVIC FRACTURE [None]
  - BACK PAIN [None]
